FAERS Safety Report 13010191 (Version 5)
Quarter: 2017Q4

REPORT INFORMATION
  Report Type: Report from Study
  Country: None (occurrence: US)
  Receive Date: 20161208
  Receipt Date: 20171204
  Transmission Date: 20180320
  Serious: Yes (Other)
  Sender: FDA-Public Use
  Company Number: US-ABBVIE-16K-163-1800863-00

PATIENT
  Sex: Female

DRUGS (1)
  1. HUMIRA [Suspect]
     Active Substance: ADALIMUMAB
     Indication: CROHN^S DISEASE
     Route: 058

REACTIONS (7)
  - Hepatic cirrhosis [Not Recovered/Not Resolved]
  - Hepatic failure [Unknown]
  - Pruritus [Not Recovered/Not Resolved]
  - Weight abnormal [Not Recovered/Not Resolved]
  - Type 2 diabetes mellitus [Not Recovered/Not Resolved]
  - Hepatic steatosis [Unknown]
  - Insomnia [Unknown]

NARRATIVE: CASE EVENT DATE: 2016
